FAERS Safety Report 17220554 (Version 1)
Quarter: 2019Q4

REPORT INFORMATION
  Report Type: Spontaneous
  Country: IT (occurrence: IT)
  Receive Date: 20191231
  Receipt Date: 20191231
  Transmission Date: 20200122
  Serious: Yes (Other)
  Sender: FDA-Public Use
  Company Number: IT-MYLANLABS-2019M1132009

PATIENT
  Sex: Female

DRUGS (5)
  1. TEMOZOLOMIDE. [Suspect]
     Active Substance: TEMOZOLOMIDE
     Dosage: UNK, CYCLE, DOSE REDUCTION FOR A FURTHER EIGHT CYCLES
  2. CAPECITABINE. [Suspect]
     Active Substance: CAPECITABINE
     Indication: NEUROENDOCRINE TUMOUR
     Dosage: UNK UNK, CYCLE, DOSE REDUCTION FOR A FURTHER EIGHT CYCLES
  3. CAPECITABINE. [Suspect]
     Active Substance: CAPECITABINE
     Dosage: ONE CYCLE
  4. OCTREOTIDE. [Concomitant]
     Active Substance: OCTREOTIDE
     Indication: NEUROENDOCRINE TUMOUR
     Dosage: 30 MILLIGRAM, EVERY 4 WEEKS
     Dates: start: 201411
  5. TEMOZOLOMIDE. [Suspect]
     Active Substance: TEMOZOLOMIDE
     Indication: NEUROENDOCRINE TUMOUR
     Dosage: UNK, CYCLE

REACTIONS (2)
  - Off label use [Unknown]
  - Thrombocytopenia [Recovered/Resolved]
